FAERS Safety Report 25349467 (Version 1)
Quarter: 2025Q2

REPORT INFORMATION
  Report Type: Spontaneous
  Country: CN (occurrence: CN)
  Receive Date: 20250522
  Receipt Date: 20250522
  Transmission Date: 20250717
  Serious: Yes (Hospitalization)
  Sender: BEIGENE
  Company Number: CN-BEIGENE-BGN-2025-007980

PATIENT
  Age: 65 Year
  Weight: 63 kg

DRUGS (4)
  1. TISLELIZUMAB [Suspect]
     Active Substance: TISLELIZUMAB
     Indication: Lung adenocarcinoma
     Dosage: 200 MILLIGRAM, Q3WK
  2. PEMETREXED [Suspect]
     Active Substance: PEMETREXED
     Indication: Lung adenocarcinoma
     Dosage: 0.18 GRAM, D1, Q3W
  3. PEMETREXED [Suspect]
     Active Substance: PEMETREXED
     Dosage: 0.5 GRAM, D1, Q3W
  4. CISPLATIN [Suspect]
     Active Substance: CISPLATIN
     Indication: Lung adenocarcinoma
     Dosage: 100 MILLIGRAM, D1, Q3W

REACTIONS (1)
  - Myelosuppression [Recovering/Resolving]
